FAERS Safety Report 9471563 (Version 1)
Quarter: 2013Q3

REPORT INFORMATION
  Report Type: Spontaneous
  Country: EG (occurrence: EG)
  Receive Date: 20130822
  Receipt Date: 20130822
  Transmission Date: 20140515
  Serious: Yes (Other)
  Sender: FDA-Public Use
  Company Number: PHHY2013EG088433

PATIENT
  Sex: 0

DRUGS (2)
  1. TACROLIMUS [Suspect]
     Dosage: 0.5 MG
  2. TELAPREVIR [Interacting]
     Indication: HEPATITIS C

REACTIONS (2)
  - Immunosuppressant drug level increased [Recovered/Resolved]
  - Drug interaction [Unknown]
